FAERS Safety Report 11429803 (Version 19)
Quarter: 2016Q4

REPORT INFORMATION
  Report Type: Report from Study
  Country: CA (occurrence: CA)
  Receive Date: 20150828
  Receipt Date: 20161108
  Transmission Date: 20170206
  Serious: Yes (Death, Hospitalization, Other)
  Sender: FDA-Public Use
  Company Number: CA-ROCHE-ITM201501IM008896

PATIENT
  Age: 58 Year
  Sex: Female
  Weight: 58.6 kg

DRUGS (24)
  1. ESBRIET [Suspect]
     Active Substance: PIRFENIDONE
     Route: 048
     Dates: end: 201606
  2. EZETROL [Concomitant]
     Active Substance: EZETIMIBE
  3. CRESTOR [Concomitant]
     Active Substance: ROSUVASTATIN CALCIUM
  4. ESBRIET [Suspect]
     Active Substance: PIRFENIDONE
     Route: 048
     Dates: start: 20150514
  5. VALSARTAN. [Concomitant]
     Active Substance: VALSARTAN
  6. TECTA [Concomitant]
     Active Substance: PANTOPRAZOLE MAGNESIUM
     Route: 065
  7. ZOPLICONE [Suspect]
     Active Substance: ZOPICLONE
     Indication: NERVOUS SYSTEM DISORDER
     Dosage: AT BEDTIME
     Route: 065
  8. ZANTAC [Concomitant]
     Active Substance: RANITIDINE HYDROCHLORIDE
     Route: 065
  9. CLARITHROMYCIN. [Concomitant]
     Active Substance: CLARITHROMYCIN
     Route: 065
  10. OXYGEN. [Concomitant]
     Active Substance: OXYGEN
     Dosage: 2-4 LITERS 24/7
     Route: 065
  11. ESBRIET [Suspect]
     Active Substance: PIRFENIDONE
     Route: 048
     Dates: start: 20150119
  12. ESBRIET [Suspect]
     Active Substance: PIRFENIDONE
     Route: 048
     Dates: start: 20150430
  13. APO-CLARITHROMYCIN [Concomitant]
     Active Substance: CLARITHROMYCIN
     Dosage: FOR 10 DAYS
     Route: 065
  14. ESBRIET [Suspect]
     Active Substance: PIRFENIDONE
     Indication: IDIOPATHIC PULMONARY FIBROSIS
     Route: 048
     Dates: start: 20141108, end: 20141230
  15. ESBRIET [Suspect]
     Active Substance: PIRFENIDONE
     Route: 048
     Dates: start: 20150105
  16. SYNTHROID [Concomitant]
     Active Substance: LEVOTHYROXINE SODIUM
  17. ASA [Concomitant]
     Active Substance: ASPIRIN
  18. ESBRIET [Suspect]
     Active Substance: PIRFENIDONE
     Route: 048
     Dates: start: 20150112
  19. ESBRIET [Suspect]
     Active Substance: PIRFENIDONE
     Dosage: 534MG-801MG-534MG
     Route: 048
     Dates: start: 20150126
  20. ESBRIET [Suspect]
     Active Substance: PIRFENIDONE
     Route: 048
     Dates: start: 20150528
  21. ESBRIET [Suspect]
     Active Substance: PIRFENIDONE
     Dosage: 534MG-801MG-534MG
     Route: 048
  22. ZOLOFT [Suspect]
     Active Substance: SERTRALINE HYDROCHLORIDE
     Indication: NERVOUS SYSTEM DISORDER
     Dosage: AT BEDTIME
     Route: 065
  23. ZOPLICONE [Suspect]
     Active Substance: ZOPICLONE
     Route: 065
  24. VITAMIN D3 [Concomitant]
     Active Substance: CHOLECALCIFEROL

REACTIONS (40)
  - Headache [Recovering/Resolving]
  - Depression [Not Recovered/Not Resolved]
  - Chills [Unknown]
  - Respiratory failure [Fatal]
  - Tremor [Not Recovered/Not Resolved]
  - Dizziness [Recovering/Resolving]
  - Nasopharyngitis [Unknown]
  - Urinary tract infection [Recovered/Resolved]
  - Abnormal dreams [Unknown]
  - Pyrexia [Unknown]
  - Decreased appetite [Unknown]
  - Urinary tract infection [Recovered/Resolved]
  - Diarrhoea [Not Recovered/Not Resolved]
  - Asthenia [Not Recovered/Not Resolved]
  - Pulmonary function test decreased [Recovering/Resolving]
  - Influenza [Unknown]
  - Pneumothorax spontaneous [Not Recovered/Not Resolved]
  - Traumatic lung injury [Not Recovered/Not Resolved]
  - Insomnia [Unknown]
  - Chest discomfort [Recovering/Resolving]
  - Insomnia [Not Recovered/Not Resolved]
  - Nausea [Unknown]
  - Vomiting [Not Recovered/Not Resolved]
  - Pain [Unknown]
  - Dyspepsia [Not Recovered/Not Resolved]
  - Dyspnoea [Unknown]
  - Malaise [Unknown]
  - Oxygen saturation decreased [Unknown]
  - Skin atrophy [Unknown]
  - Pulmonary pain [Unknown]
  - Infection [Unknown]
  - Pollakiuria [Unknown]
  - Rash [Recovering/Resolving]
  - Decreased appetite [Not Recovered/Not Resolved]
  - Influenza [Not Recovered/Not Resolved]
  - Abdominal discomfort [Not Recovered/Not Resolved]
  - Somnolence [Unknown]
  - Decreased interest [Unknown]
  - Blood glucose increased [Unknown]
  - Cough [Unknown]

NARRATIVE: CASE EVENT DATE: 201501
